FAERS Safety Report 8121221-0 (Version None)
Quarter: 2012Q1

REPORT INFORMATION
  Report Type: 
  Country: None (occurrence: None)
  Receive Date: 20120208
  Receipt Date: 20120130
  Transmission Date: 20120608
  Serious: Yes (Hospitalization, Other)
  Sender: FDA-Public Use
  Company Number: US-BAYER-2010-002625

PATIENT
  Age: 42 Year
  Sex: Female
  Weight: 95.238 kg

DRUGS (10)
  1. CYMBALTA [Concomitant]
     Indication: MAJOR DEPRESSION
  2. YAZ [Suspect]
     Indication: MENORRHAGIA
     Dosage: UNK
     Dates: start: 20060101, end: 20100101
  3. LIPITOR [Concomitant]
     Dosage: UNK
  4. SINGULAIR [Concomitant]
     Indication: SEASONAL ALLERGY
     Dosage: UNK
     Dates: start: 20050101
  5. CYMBALTA [Concomitant]
     Indication: ANXIETY DISORDER
  6. CYMBALTA [Concomitant]
     Indication: FIBROMYALGIA
  7. YASMIN [Suspect]
     Indication: MENORRHAGIA
     Dosage: UNK
     Dates: start: 20060101, end: 20100101
  8. ALBUTEROL [Concomitant]
     Dosage: UNK
  9. OMEPRAZOLE [Concomitant]
     Indication: GASTROOESOPHAGEAL REFLUX DISEASE
     Dosage: UNK
     Dates: start: 20000101
  10. ZYRTEC [Concomitant]
     Indication: MULTIPLE ALLERGIES
     Dosage: UNK
     Dates: start: 20050101

REACTIONS (4)
  - DIARRHOEA [None]
  - CHOLECYSTITIS CHRONIC [None]
  - CONSTIPATION [None]
  - CHOLECYSTITIS [None]
